FAERS Safety Report 7919364 (Version 4)
Quarter: 2013Q1

REPORT INFORMATION
  Report Type: Report from Study
  Country: KR (occurrence: KR)
  Receive Date: 20110428
  Receipt Date: 20130308
  Transmission Date: 20140127
  Serious: Yes (Hospitalization)
  Sender: FDA-Public Use
  Company Number: KR-BAYER-2011-035030

PATIENT
  Age: 50 Year
  Sex: Male
  Weight: 56.5 kg

DRUGS (42)
  1. SORAFENIB (RAF KINASE INHIBITOR) [Suspect]
     Indication: GASTRIC CANCER
     Dosage: 800 MG, BID
     Dates: start: 20110405, end: 20110422
  2. SORAFENIB (RAF KINASE INHIBITOR) [Suspect]
     Indication: GASTRIC CANCER
     Dosage: 800 MG, BID
     Dates: start: 20110620, end: 20110627
  3. SORAFENIB (RAF KINASE INHIBITOR) [Suspect]
     Indication: GASTRIC CANCER
     Dosage: DAILY DOSE 800 MG
     Dates: start: 20110718
  4. CAPECITABINE [Suspect]
     Indication: GASTRIC CANCER
     Dosage: 2600 MG
     Dates: start: 20110405, end: 20110419
  5. CAPECITABINE [Suspect]
     Indication: GASTRIC CANCER
     Dosage: 600 MG/M2/DAY BID
     Dates: start: 20110620
  6. CAPECITABINE [Suspect]
     Indication: GASTRIC CANCER
     Dosage: DAILY DOSE 2000 MG
     Dates: start: 20110718
  7. CISPLATIN [Suspect]
     Indication: GASTRIC CANCER
     Dosage: 60 MG/M2/DAY
     Dates: start: 20110405, end: 20110405
  8. CISPLATIN [Suspect]
     Indication: GASTRIC CANCER
     Dosage: 45 MG/M2/DAY
     Dates: start: 20110620
  9. CISPLATIN [Suspect]
     Indication: GASTRIC CANCER
     Dosage: 45 MG/M?/DAY
     Dates: start: 20110718
  10. APREPITANT [Concomitant]
     Indication: NAUSEA
     Dosage: UNK
     Dates: start: 20110620, end: 20110622
  11. APREPITANT [Concomitant]
     Indication: NAUSEA
     Dosage: UNK
     Dates: start: 20110718, end: 20110720
  12. RAMOSETRON [Concomitant]
     Indication: NAUSEA
     Dosage: UNK
     Dates: start: 20110620, end: 20110620
  13. RAMOSETRON [Concomitant]
     Indication: NAUSEA
     Dosage: UNK
     Dates: start: 20110718, end: 20110718
  14. DEXAMETHASONE [Concomitant]
     Indication: PROPHYLAXIS
     Dosage: UNK
     Dates: start: 20110620, end: 20110623
  15. DEXAMETHASONE [Concomitant]
     Indication: PROPHYLAXIS
     Dosage: UNK
     Dates: start: 20110718, end: 20110719
  16. DEXAMETHASONE [Concomitant]
     Indication: PROPHYLAXIS
     Dosage: UNK
     Dates: start: 20110813, end: 20110818
  17. RANITIDINE [Concomitant]
     Indication: PROPHYLAXIS
     Dosage: UNK
     Dates: start: 20110406, end: 20110818
  18. POTASSIUM CHLORIDE [Concomitant]
     Indication: PROPHYLAXIS
     Dosage: UNK
     Dates: start: 20110620, end: 20110620
  19. POTASSIUM CHLORIDE [Concomitant]
     Indication: PROPHYLAXIS
     Dosage: UNK
     Dates: start: 20110717, end: 20110718
  20. MAGNESIUM SULFATE [Concomitant]
     Indication: PROPHYLAXIS
     Dosage: UNK
     Dates: start: 20110620, end: 20110620
  21. MAGNESIUM SULFATE [Concomitant]
     Indication: PROPHYLAXIS
     Dosage: UNK
     Dates: start: 20110717, end: 20110718
  22. METOCLOPRAMIDE HCL [Concomitant]
     Indication: NAUSEA
     Dosage: UNK
     Dates: start: 20110301
  23. METOCLOPRAMIDE HCL [Concomitant]
     Indication: VOMITING
  24. PROTAMINE [Concomitant]
     Indication: PROPHYLAXIS
  25. PHAZYME-95 [Concomitant]
     Indication: PROPHYLAXIS
     Dosage: UNK
     Dates: start: 20110621, end: 20110624
  26. BACLOFEN [Concomitant]
     Indication: HICCUPS
     Dosage: UNK UNK, PRN
     Dates: start: 20110622
  27. SODIUM BICARBONATE [Concomitant]
     Indication: PROPHYLAXIS
     Dosage: UNK
     Dates: start: 20110620, end: 20110711
  28. SODIUM BICARBONATE [Concomitant]
     Indication: STOMATITIS
     Dosage: UNK
     Dates: start: 20110717, end: 20110722
  29. SODIUM BICARBONATE [Concomitant]
     Indication: PROPHYLAXIS
     Dosage: UNK
     Dates: start: 20110813
  30. RED BLOOD CELLS [Concomitant]
     Indication: ANAEMIA
     Dosage: UNK
     Dates: start: 20110620, end: 20110620
  31. LOPERAMIDE OXIDE [Concomitant]
     Indication: DIARRHOEA
     Dosage: UNK
     Dates: start: 20110719, end: 20110720
  32. LOPERAMIDE OXIDE [Concomitant]
     Indication: PROPHYLAXIS
     Dosage: UNK
     Dates: start: 20110721, end: 20110722
  33. DIOCTAHEDRAL SMECTITE [Concomitant]
     Indication: DIARRHOEA
     Dosage: UNK
     Dates: start: 20110719, end: 20110720
  34. DIOCTAHEDRAL SMECTITE [Concomitant]
     Indication: PROPHYLAXIS
     Dosage: UNK
     Dates: start: 20110721, end: 20110722
  35. NUTRIFLEX LIPID PERI [Concomitant]
     Indication: PROPHYLAXIS
     Dosage: UNK
     Dates: start: 20110720, end: 20110721
  36. MULTIVITAMINS, COMBINATIONS [Concomitant]
     Indication: PROPHYLAXIS
     Dosage: UNK
     Dates: start: 20110720, end: 20110721
  37. MULTIVITAMINS, COMBINATIONS [Concomitant]
     Indication: PROPHYLAXIS
     Dosage: UNK
     Dates: start: 20110809, end: 20110814
  38. COMBIFLEX [Concomitant]
     Indication: PROPHYLAXIS
     Dosage: UNK
     Dates: start: 20110809, end: 20110814
  39. TRAVOCORT [Concomitant]
     Indication: PALMAR-PLANTAR ERYTHRODYSAESTHESIA SYNDROME
     Dosage: UNK
     Dates: start: 20110810, end: 20110905
  40. DESONIDE [Concomitant]
     Indication: PALMAR-PLANTAR ERYTHRODYSAESTHESIA SYNDROME
     Dosage: UNK
     Dates: start: 20110810, end: 20110905
  41. MUPIROCIN [Concomitant]
     Indication: PALMAR-PLANTAR ERYTHRODYSAESTHESIA SYNDROME
     Dosage: UNK
     Dates: start: 20110811, end: 20110905
  42. ALBUMIN [Concomitant]
     Indication: PROPHYLAXIS
     Dosage: UNK
     Dates: start: 20110815, end: 20110815

REACTIONS (2)
  - Febrile neutropenia [Recovered/Resolved]
  - Panic disorder [Recovered/Resolved]
